FAERS Safety Report 9599268 (Version 1)
Quarter: 2013Q4

REPORT INFORMATION
  Report Type: Spontaneous
  Country: US (occurrence: US)
  Receive Date: 20131004
  Receipt Date: 20131004
  Transmission Date: 20140711
  Serious: No
  Sender: FDA-Public Use
  Company Number: US-AMGEN-USASP2013028378

PATIENT
  Age: 61 Year
  Sex: Female
  Weight: 99.77 kg

DRUGS (5)
  1. ENBREL [Suspect]
     Indication: PRODUCT USED FOR UNKNOWN INDICATION
     Dosage: 50 MG, QWK
     Route: 058
  2. LEVOXYL [Concomitant]
     Dosage: 88 MUG, UNK
  3. IBUPROFEN [Concomitant]
     Dosage: UNK
  4. LIPITOR [Concomitant]
     Dosage: 10 MG, UNK
  5. CYMBALTA [Concomitant]
     Dosage: 60 MG, UNK

REACTIONS (1)
  - Skin disorder [Unknown]
